FAERS Safety Report 8141470-5 (Version None)
Quarter: 2012Q1

REPORT INFORMATION
  Report Type: 
  Country: None (occurrence: None)
  Receive Date: 20120216
  Receipt Date: 20120207
  Transmission Date: 20120608
  Serious: Yes (Hospitalization, Other)
  Sender: FDA-Public Use
  Company Number: PHEH2011US04060

PATIENT
  Sex: Male

DRUGS (24)
  1. PREVACID [Concomitant]
     Dosage: 30 MG, DAILY
     Dates: start: 20110426
  2. EMLA [Concomitant]
  3. CALCIUM CARBONATE [Concomitant]
     Dosage: 1000 MG, TID
     Dates: start: 20110314
  4. LEUCOVORIN CALCIUM [Concomitant]
  5. EPIPEN [Concomitant]
  6. VITAMIN D [Concomitant]
     Dosage: 4000 U, QD
     Dates: start: 20110608
  7. DAPSONE [Concomitant]
     Dosage: 200 MG, QW
     Dates: start: 20110815, end: 20110915
  8. CHEMOTHERAPEUTICS [Suspect]
  9. EXJADE [Suspect]
     Indication: ACUTE LYMPHOCYTIC LEUKAEMIA
     Dosage: 1000 MG, DAILY
     Route: 048
     Dates: end: 20120120
  10. EXJADE [Suspect]
     Indication: HEREDITARY HAEMOCHROMATOSIS
  11. NEURONTIN [Concomitant]
     Indication: NEUROPATHY PERIPHERAL
     Dosage: 200 MG, PRN
     Dates: start: 20110608
  12. BENADRYL [Concomitant]
  13. EXJADE [Suspect]
     Indication: IRON OVERLOAD
  14. ZOFRAN [Concomitant]
     Indication: NAUSEA
     Dosage: 8 MG (EVERY 8 HOURS), PRN
     Dates: start: 20080728
  15. MIRALAX [Concomitant]
     Dosage: 17 G, QD
     Dates: start: 20110622
  16. ADEKS [Concomitant]
     Dosage: 1 DF, QD
     Dates: start: 20110505
  17. NEUPOGEN [Concomitant]
  18. EXJADE [Suspect]
     Indication: CHELATION THERAPY
     Dosage: 1000 MG, DAILY
     Route: 048
     Dates: start: 20110622, end: 20111104
  19. PERIDEX [Concomitant]
     Dosage: 15 ML, QID
     Dates: start: 20090714
  20. COLACE [Concomitant]
     Dosage: 200 MG, DAILY
     Dates: start: 20110131
  21. CARAFATE [Concomitant]
     Indication: OROPHARYNGEAL PAIN
  22. NOVOLIN R [Concomitant]
  23. FLUCONAZOLE [Concomitant]
     Dosage: 200 MG, DAILY
     Dates: start: 20110809
  24. NYSTATIN [Concomitant]
     Dosage: 5 ML, QID

REACTIONS (3)
  - MALAISE [None]
  - RASH MACULO-PAPULAR [None]
  - GASTROINTESTINAL HAEMORRHAGE [None]
